FAERS Safety Report 17087166 (Version 3)
Quarter: 2020Q1

REPORT INFORMATION
  Report Type: Spontaneous
  Country: FR (occurrence: FR)
  Receive Date: 20191128
  Receipt Date: 20200101
  Transmission Date: 20200409
  Serious: Yes (Disabling, Other)
  Sender: FDA-Public Use
  Company Number: FR-AUROBINDO-AUR-APL-2019-075452

PATIENT
  Age: 84 Year
  Sex: Male
  Weight: 69 kg

DRUGS (11)
  1. BISOPROLOL [Suspect]
     Active Substance: BISOPROLOL
     Indication: HYPERTENSION
     Dosage: 1 DOSAGE FORM, ONCE A DAY
     Route: 048
     Dates: start: 201705, end: 201910
  2. RANITIDINE. [Suspect]
     Active Substance: RANITIDINE
     Indication: PREMEDICATION
     Dosage: 50 MILLIGRAM, CYCLICAL
     Route: 041
     Dates: start: 20190716, end: 20190917
  3. METHYLPREDNISOLONE. [Suspect]
     Active Substance: METHYLPREDNISOLONE
     Indication: PREMEDICATION
     Dosage: 70 MILLIGRAM, CYCLICAL
     Route: 041
     Dates: start: 20190716, end: 20190917
  4. DEXCHLORPHENIRAMINE MALEATE. [Suspect]
     Active Substance: DEXCHLORPHENIRAMINE MALEATE
     Indication: PREMEDICATION
     Dosage: 5 MILLIGRAM, CYCLICAL
     Route: 042
     Dates: start: 20190716, end: 20190917
  5. FIRMAGON [Suspect]
     Active Substance: DEGARELIX ACETATE
     Indication: PROSTATE CANCER
     Dosage: 1 DOSAGE FORM, EVERY 4 WEEKS
     Route: 058
     Dates: start: 20181008
  6. KARDEGIC [Suspect]
     Active Substance: ASPIRIN DL-LYSINE
     Indication: PRODUCT USED FOR UNKNOWN INDICATION
     Dosage: 1 DOSAGE FORM, ONCE A DAY
     Route: 048
     Dates: start: 201704, end: 20190921
  7. ONDANSETRON [Suspect]
     Active Substance: ONDANSETRON
     Indication: PREMEDICATION
     Dosage: 8 MILLIGRAM, CYCLICAL
     Route: 042
     Dates: start: 20190716, end: 20190917
  8. RAMIPRIL. [Suspect]
     Active Substance: RAMIPRIL
     Indication: HYPERTENSION
     Dosage: 2 DOSAGE FORM, ONCE A DAY
     Route: 048
     Dates: start: 2016, end: 20191004
  9. DOCETAXEL. [Suspect]
     Active Substance: DOCETAXEL
     Indication: PROSTATE CANCER
     Dosage: 87 MILLIGRAM, CYCLICAL
     Route: 041
     Dates: start: 20180327, end: 20181210
  10. JEVTANA [Suspect]
     Active Substance: CABAZITAXEL
     Indication: PROSTATE CANCER
     Dosage: 43.75 MILLIGRAM, CYCLICAL
     Route: 041
     Dates: start: 20190716, end: 20190917
  11. JEVTANA [Suspect]
     Active Substance: CABAZITAXEL
     Dosage: UNK
     Route: 041
     Dates: start: 20190716, end: 20190917

REACTIONS (2)
  - Retinal detachment [Recovered/Resolved with Sequelae]
  - Necrotising retinitis [Not Recovered/Not Resolved]

NARRATIVE: CASE EVENT DATE: 201909
